FAERS Safety Report 25179201 (Version 1)
Quarter: 2025Q2

REPORT INFORMATION
  Report Type: Report from Study
  Country: US (occurrence: US)
  Receive Date: 20250409
  Receipt Date: 20250409
  Transmission Date: 20250717
  Serious: Yes (Other)
  Sender: ABBVIE
  Company Number: US-ABBVIE-6210115

PATIENT
  Sex: Male

DRUGS (1)
  1. RINVOQ [Suspect]
     Active Substance: UPADACITINIB
     Indication: Rheumatoid arthritis
     Route: 048
     Dates: start: 20231016, end: 202410

REACTIONS (5)
  - Unevaluable event [Unknown]
  - Gingival bleeding [Recovering/Resolving]
  - Gastrooesophageal reflux disease [Recovering/Resolving]
  - Hypophagia [Recovering/Resolving]
  - Nail growth abnormal [Recovering/Resolving]
